FAERS Safety Report 10219983 (Version 1)
Quarter: 2014Q2

REPORT INFORMATION
  Report Type: Spontaneous
  Country: US (occurrence: US)
  Receive Date: 20140605
  Receipt Date: 20140605
  Transmission Date: 20141212
  Serious: Yes (Hospitalization)
  Sender: FDA-Public Use
  Company Number: US-B.I. PHARMACEUTICALS,INC./RIDGEFIELD-2014-BI-24840BP

PATIENT
  Age: 76 Year
  Sex: Female
  Weight: 55 kg

DRUGS (12)
  1. COMBIVENT [Suspect]
     Indication: HYPERSENSITIVITY
     Dosage: STRENGTH: 20 MCG / 100 MCG; DAILY DOSE: 80 MCG/400 MCG
     Route: 055
     Dates: start: 201110
  2. COMBIVENT [Suspect]
     Indication: ASTHMA
  3. RANITIDINE [Concomitant]
     Indication: GASTROOESOPHAGEAL REFLUX DISEASE
     Dosage: 150 MG
     Route: 048
  4. VERAPAMIL ER [Concomitant]
     Indication: HYPERTENSION
     Dosage: 240 MG
     Route: 048
  5. LEVOTHYROXINE [Concomitant]
     Indication: HYPOTHYROIDISM
     Dosage: 0.05 MG
     Route: 048
  6. FENOFIBRATE [Concomitant]
     Indication: BLOOD CHOLESTEROL INCREASED
     Dosage: 320 MG
     Route: 048
  7. BENADRYL [Concomitant]
     Indication: SEASONAL ALLERGY
     Dosage: 150 MG
     Route: 048
  8. TYLENOL [Concomitant]
     Indication: HYPERSENSITIVITY
     Route: 048
  9. TYLENOL [Concomitant]
     Indication: HEADACHE
  10. MULTIVITAMIN [Concomitant]
     Indication: SUPPLEMENTATION THERAPY
     Dosage: 1 ANZ
     Route: 048
  11. VITAMIN D3 [Concomitant]
     Indication: SUPPLEMENTATION THERAPY
     Dosage: 1000 MG
     Route: 048
  12. CALCIUM [Concomitant]
     Indication: SUPPLEMENTATION THERAPY
     Dosage: 600 MG
     Route: 048

REACTIONS (2)
  - Trigeminal neuralgia [Unknown]
  - Off label use [Unknown]
